FAERS Safety Report 7108570-X (Version None)
Quarter: 2010Q4

REPORT INFORMATION
  Report Type: 
  Country: None (occurrence: None)
  Receive Date: 20101117
  Receipt Date: 20101005
  Transmission Date: 20110411
  Serious: No
  Sender: FDA-Public Use
  Company Number: A0885015A

PATIENT
  Age: 74 Year
  Sex: Male

DRUGS (7)
  1. VOTRIENT [Suspect]
     Dosage: 400MG TWICE PER DAY
     Route: 048
     Dates: start: 20100928
  2. VITAMIN B [Concomitant]
  3. DIGITEK [Concomitant]
  4. UNKNOWN DRUG [Concomitant]
  5. HYDROXYZINE [Concomitant]
  6. FLOMAX [Concomitant]
  7. LIPITOR [Concomitant]

REACTIONS (2)
  - DIZZINESS [None]
  - FATIGUE [None]
